FAERS Safety Report 8415733-X (Version None)
Quarter: 2012Q2

REPORT INFORMATION
  Report Type: 
  Country: None (occurrence: None)
  Receive Date: 20120606
  Receipt Date: 20120112
  Transmission Date: 20120825
  Serious: No
  Sender: FDA-Public Use
  Company Number: JP-ASTELLAS-2011JP003712

PATIENT
  Sex: Female
  Weight: 72.5 kg

DRUGS (4)
  1. BETAMETHASONE SODIUM PHOSPHATE [Concomitant]
     Indication: SEBORRHOEIC DERMATITIS
     Dosage: UNK
     Route: 061
     Dates: end: 20111130
  2. KINDAVATE [Concomitant]
     Indication: ECZEMA
     Dosage: UNK
     Route: 061
     Dates: end: 20111130
  3. PROTOPIC [Suspect]
     Indication: SJOGREN'S SYNDROME
     Dosage: 0.1 %, UNK
     Route: 061
     Dates: start: 20081203, end: 20110511
  4. CLINDAMYCIN PHOSPHATE [Concomitant]
     Indication: ACNE
     Dosage: UNK
     Route: 061
     Dates: end: 20111130

REACTIONS (2)
  - OFF LABEL USE [None]
  - MATERNAL EXPOSURE DURING PREGNANCY [None]
